FAERS Safety Report 5444060-8 (Version None)
Quarter: 2007Q3

REPORT INFORMATION
  Report Type: 
  Country: None (occurrence: None)
  Receive Date: 20070831
  Receipt Date: 20070820
  Transmission Date: 20080115
  Serious: Yes (Hospitalization)
  Sender: FDA-Public Use
  Company Number: 2007PV033324

PATIENT
  Age: 67 Year
  Sex: Male
  Weight: 104.3273 kg

DRUGS (17)
  1. SYMLIN [Suspect]
     Indication: TYPE 2 DIABETES MELLITUS
     Dosage: 120 MCG; QID; SC
     Route: 058
     Dates: start: 20050101
  2. LANTUS [Concomitant]
  3. NOVOLOG [Concomitant]
  4. MAGNESIUM OXIDE [Concomitant]
  5. ASPIRIN [Concomitant]
  6. FUROSEMIDE [Concomitant]
  7. POTASSIUM CHLORIDE [Concomitant]
  8. ISOSORBIDE DINITRATE [Concomitant]
  9. PRAVACHOL [Concomitant]
  10. COREG [Concomitant]
  11. DILTIAZEM [Concomitant]
  12. WARFARIN SODIUM [Concomitant]
  13. LANOXIN [Concomitant]
  14. STOOL SOFTENER [Concomitant]
  15. METOLAZONE [Concomitant]
  16. PRAMIPEXOLE DIHYDROCHLORIDE [Concomitant]
  17. CPAP [Concomitant]

REACTIONS (5)
  - ARRHYTHMIA [None]
  - BLOOD PRESSURE INCREASED [None]
  - INJECTION SITE ERYTHEMA [None]
  - NASOPHARYNGITIS [None]
  - WEIGHT INCREASED [None]
